FAERS Safety Report 16119950 (Version 2)
Quarter: 2019Q2

REPORT INFORMATION
  Report Type: Spontaneous
  Country: JP (occurrence: JP)
  Receive Date: 20190326
  Receipt Date: 20190403
  Transmission Date: 20190711
  Serious: Yes (Other)
  Sender: FDA-Public Use
  Company Number: JP-PFM-2019-03140

PATIENT

DRUGS (12)
  1. CISPLATIN. [Concomitant]
     Active Substance: CISPLATIN
     Dosage: CDDP/PEM FOR THREE TIMES
     Dates: start: 200910
  2. GEMCITABINE [Concomitant]
     Active Substance: GEMCITABINE\GEMCITABINE HYDROCHLORIDE
     Indication: LUNG ADENOCARCINOMA
  3. BEVACIZUMAB. [Concomitant]
     Active Substance: BEVACIZUMAB
     Indication: LUNG ADENOCARCINOMA
     Dosage: AT ONCE, AND THEREAFTER CONTINUE BEVA UNTIL RELAPSE.
     Dates: start: 201001
  4. CISPLATIN. [Concomitant]
     Active Substance: CISPLATIN
     Indication: LUNG ADENOCARCINOMA
     Dosage: CDDP / GEM FOR THREE COURSES
     Dates: start: 200612, end: 200703
  5. CISPLATIN. [Concomitant]
     Active Substance: CISPLATIN
     Dosage: AT ONCE, AND THEREAFTER CONTINUE BEVA UNTIL RELAPSE.
     Dates: start: 201001
  6. GEFITINIB. [Concomitant]
     Active Substance: GEFITINIB
     Dosage: UNK
     Dates: start: 201004, end: 201008
  7. PEMETREXED. [Concomitant]
     Active Substance: PEMETREXED
     Indication: LUNG ADENOCARCINOMA
     Dosage: LUNG ADENOCARCINOMA
     Dates: start: 200910
  8. NAVELBIN [Suspect]
     Active Substance: VINORELBINE TARTRATE
     Indication: LUNG ADENOCARCINOMA STAGE III
     Dosage: FOR THREE COURSES
     Route: 042
     Dates: start: 200711, end: 200802
  9. CISPLATIN. [Concomitant]
     Active Substance: CISPLATIN
     Dosage: CDDP/VNR FOR THREE COURSES WITH CONCURRENT RADIOTHERAPY
     Dates: start: 200711, end: 200802
  10. GEFITINIB. [Concomitant]
     Active Substance: GEFITINIB
     Indication: LUNG ADENOCARCINOMA
     Dosage: 250 MG, QD (1/DAY)
     Dates: start: 200808, end: 200910
  11. ERLOTINIB [Concomitant]
     Active Substance: ERLOTINIB
     Indication: LUNG ADENOCARCINOMA
     Dosage: UNK
     Dates: start: 201010
  12. PEMETREXED. [Concomitant]
     Active Substance: PEMETREXED
     Dosage: AT ONCE, AND THEREAFTER CONTINUE BEVA UNTIL RELAPSE.
     Dates: start: 201001

REACTIONS (1)
  - Malignant transformation [Unknown]

NARRATIVE: CASE EVENT DATE: 20110202
